FAERS Safety Report 23173504 (Version 1)
Quarter: 2023Q4

REPORT INFORMATION
  Report Type: Report from Study
  Country: US (occurrence: US)
  Receive Date: 20231111
  Receipt Date: 20231111
  Transmission Date: 20240110
  Serious: Yes (Other)
  Sender: FDA-Public Use
  Company Number: US-ABBVIE-5488929

PATIENT
  Age: 56 Year
  Sex: Male

DRUGS (1)
  1. LINZESS [Suspect]
     Active Substance: LINACLOTIDE
     Indication: Product used for unknown indication
     Route: 048

REACTIONS (4)
  - Cerebrovascular accident [Unknown]
  - Pain [Unknown]
  - Neoplasm malignant [Unknown]
  - Irritable bowel syndrome [Unknown]
